FAERS Safety Report 9919838 (Version 1)
Quarter: 2014Q1

REPORT INFORMATION
  Report Type: Spontaneous
  Country: US (occurrence: US)
  Receive Date: 20140224
  Receipt Date: 20140224
  Transmission Date: 20141002
  Serious: Yes (Hospitalization, Other)
  Sender: FDA-Public Use
  Company Number: PHEH2014US003357

PATIENT
  Sex: Female

DRUGS (9)
  1. VALSARTAN + HCT [Suspect]
     Dosage: UNK (160/12.5 MG), UNK
  2. DIOVAN [Suspect]
  3. BETA BLOCKING AGENTS [Suspect]
  4. NORVASC [Suspect]
  5. ASPIRIN [Concomitant]
     Dosage: 81 MG, QD
  6. PLAVIX [Concomitant]
     Dosage: 75 MG, QD
  7. METOPROLOL [Concomitant]
  8. ZOCOR [Concomitant]
  9. ISOSORBIDE MONONITRATE [Concomitant]
     Dosage: UNK UKN, UNK

REACTIONS (6)
  - Myocardial infarction [Unknown]
  - Coronary artery occlusion [Unknown]
  - Irritability [Unknown]
  - Pain in extremity [Unknown]
  - Blood pressure inadequately controlled [Unknown]
  - Cough [Unknown]
